FAERS Safety Report 26190545 (Version 1)
Quarter: 2025Q4

REPORT INFORMATION
  Report Type: Spontaneous
  Country: TH (occurrence: TH)
  Receive Date: 20251223
  Receipt Date: 20251223
  Transmission Date: 20260118
  Serious: Yes (Other)
  Sender: ROCHE
  Company Number: TH-ROCHE-10000454037

PATIENT
  Age: 31 Year

DRUGS (3)
  1. MYCOPHENOLATE MOFETIL [Suspect]
     Active Substance: MYCOPHENOLATE MOFETIL
     Indication: Prophylaxis against transplant rejection
  2. TACROLIMUS [Suspect]
     Active Substance: TACROLIMUS
     Indication: Prophylaxis against transplant rejection
  3. PREDNISONE [Suspect]
     Active Substance: PREDNISONE
     Indication: Prophylaxis against transplant rejection

REACTIONS (6)
  - JC polyomavirus test positive [Unknown]
  - Mycobacterium haemophilum infection [Recovering/Resolving]
  - Hypercalcaemia [Recovering/Resolving]
  - Confusional state [Unknown]
  - Renal failure [Unknown]
  - Pancytopenia [Recovering/Resolving]
